FAERS Safety Report 14102859 (Version 2)
Quarter: 2017Q4

REPORT INFORMATION
  Report Type: Spontaneous
  Country: US (occurrence: US)
  Receive Date: 20171018
  Receipt Date: 20171024
  Transmission Date: 20180321
  Serious: Yes (Hospitalization)
  Sender: FDA-Public Use
  Company Number: US-JNJFOC-20171012379

PATIENT
  Age: 65 Year
  Sex: Female
  Weight: 127.01 kg

DRUGS (6)
  1. DURAGESIC [Suspect]
     Active Substance: FENTANYL
     Indication: PAIN
     Route: 062
     Dates: start: 201704, end: 201709
  2. ACIPHEX [Concomitant]
     Active Substance: RABEPRAZOLE SODIUM
     Indication: RESPIRATORY DISORDER
     Route: 065
  3. ALLEGRA [Concomitant]
     Active Substance: FEXOFENADINE HYDROCHLORIDE
     Route: 065
  4. ACIPHEX [Concomitant]
     Active Substance: RABEPRAZOLE SODIUM
     Indication: GASTROOESOPHAGEAL REFLUX DISEASE
     Route: 065
  5. DURAGESIC [Suspect]
     Active Substance: FENTANYL
     Indication: PAIN
     Route: 062
  6. DURAGESIC [Suspect]
     Active Substance: FENTANYL
     Indication: PAIN
     Route: 062
     Dates: start: 201709

REACTIONS (6)
  - Drug ineffective [Unknown]
  - Drug dose omission [Unknown]
  - Mobility decreased [Not Recovered/Not Resolved]
  - Withdrawal syndrome [Unknown]
  - Wrong technique in product usage process [Unknown]
  - Product adhesion issue [Unknown]

NARRATIVE: CASE EVENT DATE: 20171008
